FAERS Safety Report 12772144 (Version 1)
Quarter: 2016Q3

REPORT INFORMATION
  Report Type: Spontaneous
  Country: US (occurrence: US)
  Receive Date: 20160922
  Receipt Date: 20160922
  Transmission Date: 20161109
  Serious: No
  Sender: FDA-Public Use
  Company Number: US-KEDRION-2015011

PATIENT
  Age: 30 Year
  Sex: Female

DRUGS (1)
  1. RHOGAM [Suspect]
     Active Substance: HUMAN RHO(D) IMMUNE GLOBULIN
     Indication: RHESUS ANTIGEN NEGATIVE
     Route: 065

REACTIONS (2)
  - Rhesus antibodies [Unknown]
  - Rhesus antibodies positive [Unknown]

NARRATIVE: CASE EVENT DATE: 20150106
